FAERS Safety Report 7043789-8 (Version None)
Quarter: 2010Q4

REPORT INFORMATION
  Report Type: 
  Country: None (occurrence: None)
  Receive Date: 20101008
  Receipt Date: 20101008
  Transmission Date: 20110411
  Serious: No
  Sender: FDA-Public Use
  Company Number: None

PATIENT
  Age: 70 Year
  Sex: Female
  Weight: 57.1532 kg

DRUGS (1)
  1. CLINDAMYCIN [Suspect]
     Dosage: 1 CAPSULE BY MOUTH TWICE DAILY, TAKEN ONE TIME ON 8-5-2011
     Dates: end: 20100805

REACTIONS (4)
  - APHAGIA [None]
  - DYSPEPSIA [None]
  - NAUSEA [None]
  - WEIGHT DECREASED [None]
